FAERS Safety Report 17524632 (Version 2)
Quarter: 2020Q1

REPORT INFORMATION
  Report Type: Spontaneous
  Country: FR (occurrence: FR)
  Receive Date: 20200310
  Receipt Date: 20200316
  Transmission Date: 20200409
  Serious: Yes (Other)
  Sender: FDA-Public Use
  Company Number: FR-009507513-2003FRA000898

PATIENT
  Age: 43 Year
  Sex: Male

DRUGS (1)
  1. NORSET [Suspect]
     Active Substance: MIRTAZAPINE
     Indication: BIPOLAR DISORDER
     Dosage: 15 MILLIGRAM, QD
     Route: 048
     Dates: start: 20200201, end: 20200208

REACTIONS (1)
  - Clonus [Recovered/Resolved]

NARRATIVE: CASE EVENT DATE: 20200202
